FAERS Safety Report 14210141 (Version 1)
Quarter: 2017Q4

REPORT INFORMATION
  Report Type: Report from Study
  Country: CN (occurrence: CN)
  Receive Date: 20171121
  Receipt Date: 20171121
  Transmission Date: 20180321
  Serious: Yes (Death, Other)
  Sender: FDA-Public Use
  Company Number: CN-INCYTE CORPORATION-2017IN009698

PATIENT

DRUGS (5)
  1. JAKAVI [Suspect]
     Active Substance: RUXOLITINIB
     Indication: THROMBOCYTOSIS
  2. JAKAVI [Suspect]
     Active Substance: RUXOLITINIB
     Indication: POLYCYTHAEMIA VERA
  3. JAKAVI [Suspect]
     Active Substance: RUXOLITINIB
     Indication: SPLENOMEGALY
  4. JAKAVI [Suspect]
     Active Substance: RUXOLITINIB
     Indication: PRIMARY MYELOFIBROSIS
     Dosage: 20 MG, BID
     Route: 048
  5. JAKAVI [Suspect]
     Active Substance: RUXOLITINIB
     Indication: MYELOFIBROSIS

REACTIONS (1)
  - Death [Fatal]

NARRATIVE: CASE EVENT DATE: 201710
